FAERS Safety Report 5994865-X (Version None)
Quarter: 2008Q4

REPORT INFORMATION
  Report Type: 
  Country: None (occurrence: None)
  Receive Date: 20081212
  Receipt Date: 20080916
  Transmission Date: 20090506
  Serious: Yes (Other)
  Sender: FDA-Public Use
  Company Number: US-ABBOTT-08P-163-0476734-00

PATIENT
  Sex: Female
  Weight: 86.26 kg

DRUGS (4)
  1. HUMIRA [Suspect]
     Indication: CROHN'S DISEASE
     Route: 058
     Dates: start: 20080502, end: 20080701
  2. HUMIRA [Suspect]
     Route: 058
     Dates: start: 20080910
  3. IMODIUM [Concomitant]
     Indication: DIARRHOEA
     Dosage: AS REQUIRED
     Route: 048
  4. VITAMIN B-12 [Concomitant]
     Indication: DRUG USE FOR UNKNOWN INDICATION
     Route: 030

REACTIONS (6)
  - ARTHRALGIA [None]
  - BREAST ABSCESS [None]
  - HYPOAESTHESIA [None]
  - JOINT SWELLING [None]
  - OEDEMA PERIPHERAL [None]
  - PAIN IN EXTREMITY [None]
